FAERS Safety Report 8860633 (Version 6)
Quarter: 2013Q1

REPORT INFORMATION
  Report Type: Spontaneous
  Country: JP (occurrence: JP)
  Receive Date: 20121025
  Receipt Date: 20130225
  Transmission Date: 20140127
  Serious: Yes (Hospitalization, Other)
  Sender: FDA-Public Use
  Company Number: JP-GILEAD-2011-0044710

PATIENT
  Sex: Male

DRUGS (3)
  1. HEPSERA [Suspect]
     Indication: CHRONIC HEPATITIS B
     Dosage: 10 MG, QD
     Route: 048
     Dates: start: 200606, end: 20110418
  2. HEPSERA [Suspect]
     Dosage: UNK
     Route: 048
     Dates: start: 20111114
  3. ZEFIX [Concomitant]
     Indication: CHRONIC HEPATITIS B
     Dosage: 100 MG, QD
     Route: 048

REACTIONS (4)
  - Tubulointerstitial nephritis [Unknown]
  - Blood creatinine increased [Unknown]
  - Renal tubular disorder [Not Recovered/Not Resolved]
  - Renal tubular disorder [Unknown]
